FAERS Safety Report 7733875-9 (Version None)
Quarter: 2011Q3

REPORT INFORMATION
  Report Type: 
  Country: None (occurrence: None)
  Receive Date: 20110907
  Receipt Date: 20110831
  Transmission Date: 20111222
  Serious: Yes (Hospitalization)
  Sender: FDA-Public Use
  Company Number: BR-SANOFI-AVENTIS-2011SA056677

PATIENT
  Age: 5 Year
  Sex: Female
  Weight: 21 kg

DRUGS (2)
  1. IBUPROFEN [Concomitant]
     Route: 048
     Dates: start: 20110801, end: 20110801
  2. NALIDIXIC ACID [Suspect]
     Route: 048
     Dates: start: 20110815, end: 20110801

REACTIONS (4)
  - SOMNOLENCE [None]
  - ABDOMINAL PAIN [None]
  - VOMITING [None]
  - TREMOR [None]
